FAERS Safety Report 19235692 (Version 1)
Quarter: 2021Q2

REPORT INFORMATION
  Report Type: Spontaneous
  Country: US (occurrence: US)
  Receive Date: 20210510
  Receipt Date: 20210510
  Transmission Date: 20210717
  Serious: Yes (Other)
  Sender: FDA-Public Use
  Company Number: US-AUROBINDO-AUR-APL-2021-018554

PATIENT
  Age: 35 Year
  Sex: Female
  Weight: 63.5 kg

DRUGS (4)
  1. TRAZODONE [Suspect]
     Active Substance: TRAZODONE HYDROCHLORIDE
     Indication: SLEEP DISORDER
     Dosage: UNK (BEFORE LMP?DELIVERY)
     Route: 065
  2. WELLBUTRIN SR [Suspect]
     Active Substance: BUPROPION HYDROCHLORIDE
     Indication: DEPRESSION
     Dosage: UNK (BEFORE LMP?DELIVERY)
     Route: 065
  3. LEXAPRO [Suspect]
     Active Substance: ESCITALOPRAM OXALATE
     Indication: ANXIETY
     Dosage: UNK (BEFORE LMP?DELIVERY)
     Route: 065
  4. METHOCARBAMOL. [Suspect]
     Active Substance: METHOCARBAMOL
     Indication: MUSCLE RELAXANT THERAPY
     Dosage: UNK (BEFORE LMP?DELIVERY)
     Route: 065

REACTIONS (1)
  - Gestational diabetes [Unknown]

NARRATIVE: CASE EVENT DATE: 20200608
